FAERS Safety Report 9957195 (Version 1)
Quarter: 2014Q1

REPORT INFORMATION
  Report Type: Report from Study
  Country: US (occurrence: US)
  Receive Date: 20140304
  Receipt Date: 20140304
  Transmission Date: 20141002
  Serious: No
  Sender: FDA-Public Use
  Company Number: US-ABBVIE-13P-163-1097785-00

PATIENT
  Age: 71 Year
  Sex: Female

DRUGS (5)
  1. HUMIRA [Suspect]
     Indication: COLITIS ULCERATIVE
     Dates: start: 20130308
  2. STEROID [Concomitant]
     Indication: COLITIS ULCERATIVE
     Dosage: EVERY NOW AND THEN
  3. LIPITOR [Concomitant]
     Indication: BLOOD CHOLESTEROL
  4. ATENOLOL [Concomitant]
     Indication: HYPERTENSION
  5. LIALDA [Concomitant]
     Indication: COLITIS ULCERATIVE

REACTIONS (2)
  - Haemorrhage [Not Recovered/Not Resolved]
  - Defaecation urgency [Not Recovered/Not Resolved]
